FAERS Safety Report 10929592 (Version 1)
Quarter: 2015Q1

REPORT INFORMATION
  Report Type: Spontaneous
  Country: US (occurrence: US)
  Receive Date: 20150319
  Receipt Date: 20150319
  Transmission Date: 20150721
  Serious: Yes (Hospitalization)
  Sender: FDA-Public Use
  Company Number: US-PFIZER INC-2015094232

PATIENT
  Age: 81 Year
  Sex: Female
  Weight: 61.22 kg

DRUGS (2)
  1. SUTENT [Suspect]
     Active Substance: SUNITINIB MALATE
     Indication: GASTROINTESTINAL STROMAL TUMOUR
     Dosage: 12.5 MG, 3X/DAY
     Route: 048
     Dates: start: 2015
  2. SUTENT [Suspect]
     Active Substance: SUNITINIB MALATE
     Dosage: 37.5 MG, 3X/DAY
     Route: 048
     Dates: start: 2015, end: 201503

REACTIONS (2)
  - Incorrect dose administered [Unknown]
  - Malaise [Unknown]
